FAERS Safety Report 24767301 (Version 2)
Quarter: 2025Q4

REPORT INFORMATION
  Report Type: Spontaneous
  Country: US (occurrence: US)
  Receive Date: 20241223
  Receipt Date: 20251017
  Transmission Date: 20260117
  Serious: No
  Sender: MERCK SHARP & DOHME LLC
  Company Number: US-009507513-2412USA006522

PATIENT
  Sex: Female
  Weight: 46.259 kg

DRUGS (20)
  1. WINREVAIR [Suspect]
     Active Substance: SOTATERCEPT-CSRK
     Dosage: DOSE DESCRIPTION : 1.8 MILLILITER
     Route: 058
     Dates: start: 2024
  2. WINREVAIR [Suspect]
     Active Substance: SOTATERCEPT-CSRK
     Route: 058
     Dates: start: 2025
  3. WINREVAIR [Suspect]
     Active Substance: SOTATERCEPT-CSRK
  4. WINREVAIR [Suspect]
     Active Substance: SOTATERCEPT-CSRK
  5. TYVASO DPI [Suspect]
     Active Substance: TREPROSTINIL
     Indication: Pulmonary arterial hypertension
     Dosage: DOSE DESCRIPTION : 64 MICROGRAM, QID?DAILY DOSE : 256 MICROGRAM
     Route: 055
     Dates: start: 20240619
  6. TYVASO DPI [Suspect]
     Active Substance: TREPROSTINIL
     Indication: Pulmonary arterial hypertension
     Dosage: STRENGTH 0.6MG/ML
     Route: 055
     Dates: start: 2025
  7. TYVASO DPI [Suspect]
     Active Substance: TREPROSTINIL
     Indication: Pulmonary arterial hypertension
     Dosage: STRENGTH 0.6MG/ML
     Route: 055
     Dates: start: 20250211
  8. AMBRISENTAN [Concomitant]
     Active Substance: AMBRISENTAN
  9. MIDODRINE HYDROCHLORIDE [Concomitant]
     Active Substance: MIDODRINE HYDROCHLORIDE
  10. IBUPROFEN [Concomitant]
     Active Substance: IBUPROFEN
  11. TADALAFIL [Concomitant]
     Active Substance: TADALAFIL
  12. TYLENOL EXTRA STRENGTH [Concomitant]
     Active Substance: ACETAMINOPHEN
  13. BREZTRI [Concomitant]
     Active Substance: BUDESONIDE\FORMOTEROL\GLYCOPYRROLATE
  14. RAMELTEON [Concomitant]
     Active Substance: RAMELTEON
  15. XANAX [Concomitant]
     Active Substance: ALPRAZOLAM
  16. PROAIR HFA [Concomitant]
     Active Substance: ALBUTEROL SULFATE
  17. VENLAFAXINE HCL [Concomitant]
     Active Substance: VENLAFAXINE HYDROCHLORIDE
  18. ASPIRIN [Concomitant]
     Active Substance: ASPIRIN
  19. BUSPIRONE HCL [Concomitant]
     Active Substance: BUSPIRONE HYDROCHLORIDE
  20. FERROUS SULFATE [Concomitant]
     Active Substance: FERROUS SULFATE

REACTIONS (8)
  - Injection site laceration [Unknown]
  - Injection site rash [Recovering/Resolving]
  - Incorrect route of product administration [Unknown]
  - Incorrect dose administered [Unknown]
  - Injection site bruising [Unknown]
  - Extra dose administered [Unknown]
  - Injection site pain [Recovering/Resolving]
  - Dose calculation error [Unknown]

NARRATIVE: CASE EVENT DATE: 20240101
